FAERS Safety Report 6131691-5 (Version None)
Quarter: 2009Q1

REPORT INFORMATION
  Report Type: 
  Country: None (occurrence: None)
  Receive Date: 20090325
  Receipt Date: 20090319
  Transmission Date: 20090719
  Serious: Yes (Death)
  Sender: FDA-Public Use
  Company Number: US-BRISTOL-MYERS SQUIBB COMPANY-14557920

PATIENT
  Age: 60 Year
  Sex: Female

DRUGS (5)
  1. MITOMYCIN [Suspect]
     Indication: NON-SMALL CELL LUNG CANCER
     Dosage: 3 DOSES; TOTAL CUMULATIVE DOSE
  2. GEMCITABINE [Suspect]
     Indication: NON-SMALL CELL LUNG CANCER
     Dosage: 1 DF= 4 G/M2 TOTAL CUMULATIVE DOSE GIVEN OVER 7 WEEKS. TOTAL CUMULATIVE DOSE 4GRAM PER SQUARE METER
  3. TRASTUZUMAB [Suspect]
     Indication: NON-SMALL CELL LUNG CANCER
  4. DOCETAXEL [Suspect]
     Indication: NON-SMALL CELL LUNG CANCER
  5. VINBLASTINE [Concomitant]
     Indication: LUNG NEOPLASM

REACTIONS (2)
  - CEREBRAL HAEMATOMA [None]
  - HAEMOLYTIC URAEMIC SYNDROME [None]
